FAERS Safety Report 22536500 (Version 1)
Quarter: 2023Q2

REPORT INFORMATION
  Report Type: Spontaneous
  Country: ES (occurrence: ES)
  Receive Date: 20230608
  Receipt Date: 20230608
  Transmission Date: 20230722
  Serious: Yes (Other)
  Sender: FDA-Public Use
  Company Number: None

PATIENT
  Age: 74 Year
  Sex: Male

DRUGS (3)
  1. CLOPIDOGREL [Interacting]
     Active Substance: CLOPIDOGREL BISULFATE
     Indication: Acute coronary syndrome
     Dates: start: 202303
  2. ASPIRIN [Interacting]
     Active Substance: ASPIRIN
     Indication: Acute coronary syndrome
     Dates: start: 202303
  3. ENOXAPARIN SODIUM [Interacting]
     Active Substance: ENOXAPARIN SODIUM
     Indication: Atrial fibrillation
     Dosage: STRENGTH: 8,000 IU (80 MG)/ 0.8 ML SOLUTION FOR INJECTION IN PRE-FILLED SYRINGE,
     Dates: start: 20230310, end: 20230323

REACTIONS (1)
  - Abdominal wall haematoma [Recovered/Resolved]

NARRATIVE: CASE EVENT DATE: 20230323
